FAERS Safety Report 8792222 (Version 1)
Quarter: 2012Q4

REPORT INFORMATION
  Report Type: 
  Country: US (occurrence: US)
  Receive Date: 20120918
  Receipt Date: 20120918
  Transmission Date: 20130627
  Serious: No
  Sender: FDA-Public Use
  Company Number: US-VERTEX PHARMACEUTICAL INC.-AE-2012-010996

PATIENT
  Age: 61 Year
  Sex: Male

DRUGS (8)
  1. INCIVEK [Suspect]
     Indication: HEPATITIS C
     Dosage: UNK
     Route: 048
     Dates: start: 20120608
  2. PEGINTERFERON ALFA-2A [Concomitant]
     Indication: HEPATITIS C
     Dosage: 180 ?g, UNK
     Dates: start: 20120608
  3. RIBAVIRIN [Concomitant]
     Indication: HEPATITIS C
     Dosage: 1200 mg, UNK
     Dates: start: 20120608
  4. QUINAPRIL [Concomitant]
  5. OMEPRAZOLE [Concomitant]
  6. HCTZ [Concomitant]
  7. BYSTOLIC [Concomitant]
  8. VITAMIN B/C [Concomitant]

REACTIONS (3)
  - Dry skin [Recovered/Resolved]
  - Rash generalised [Recovered/Resolved]
  - Pruritus [Recovered/Resolved]
